FAERS Safety Report 5065152-1 (Version None)
Quarter: 2006Q3

REPORT INFORMATION
  Report Type: 
  Country: None (occurrence: None)
  Receive Date: 20060725
  Receipt Date: 20060710
  Transmission Date: 20061208
  Serious: Yes (Hospitalization)
  Sender: FDA-Public Use
  Company Number: CA200607001695

PATIENT
  Age: 80 Year
  Sex: Female

DRUGS (5)
  1. FORTEO [Suspect]
     Indication: OSTEOPOROSIS
     Dosage: 20 UG DAILY (1/D)
     Dates: start: 20050206
  2. FORTEO PEN               (FORTEO PEN) [Concomitant]
  3. PAXIL [Concomitant]
  4. VITAMIN D [Concomitant]
  5. CALCIUM (CALCIUM) [Concomitant]

REACTIONS (7)
  - ABDOMINAL DISCOMFORT [None]
  - ACCIDENT [None]
  - CONSTIPATION [None]
  - COUGH [None]
  - GAIT DISTURBANCE [None]
  - HEADACHE [None]
  - HIP FRACTURE [None]
